FAERS Safety Report 10217471 (Version 3)
Quarter: 2014Q2

REPORT INFORMATION
  Report Type: Spontaneous
  Country: FR (occurrence: FR)
  Receive Date: 20140604
  Receipt Date: 20140610
  Transmission Date: 20141212
  Serious: Yes (Hospitalization)
  Sender: FDA-Public Use
  Company Number: FR-ASTRAZENECA-2014SE27128

PATIENT
  Age: 20434 Day
  Sex: Female

DRUGS (15)
  1. XEROQUEL [Suspect]
     Indication: DEPRESSION
     Route: 048
     Dates: start: 20130611
  2. XEROQUEL [Suspect]
     Indication: DEPRESSION
     Route: 048
     Dates: start: 20130627, end: 20130630
  3. LAMICTAL [Suspect]
     Route: 048
     Dates: start: 20130611, end: 20130627
  4. URBANYL [Suspect]
     Indication: DEPRESSION
     Dosage: 5 MG EVERY MORNING, 5 MG AT MIDDAY AND 10 MG EVERY EVENING
     Route: 048
     Dates: start: 20130627, end: 20130630
  5. LEVOTHYROX [Concomitant]
  6. TEMESTA [Concomitant]
     Dosage: PUNCTUAL INTAKE FOR FIVE YEARS
  7. TEMESTA [Concomitant]
     Dates: start: 20130611, end: 20130627
  8. NUROFEN [Concomitant]
     Indication: HEADACHE
     Dosage: PUNCTUAL INTAKE
     Dates: start: 20130627
  9. IBUPROFENE [Concomitant]
     Indication: HEADACHE
     Dosage: PUNCTUAL INTAKE
  10. STILNOX [Concomitant]
     Dosage: PUNCTUAL INTAKE
     Route: 048
  11. STILNOX [Concomitant]
     Dosage: 10 MG PER DAY IF NEEDED IN CASE OF INSOMNIA
     Route: 048
     Dates: start: 20130611, end: 20130627
  12. XANAX [Concomitant]
     Dosage: 0.25 MG ONE TO FOUR TABLETS PER DAY IF NEEDED
     Dates: start: 20130611, end: 20130627
  13. ALPRAZOLAM ARROW [Concomitant]
     Dosage: 0.25 MG ONE TO FOUR TABLETS PER DAY IN CASE OF ANXIETY
  14. VALDOXAN [Concomitant]
     Dates: start: 20130618, end: 20130627
  15. ATARAX [Concomitant]
     Dosage: ONE TABLET ON CASE OF ANXIETY
     Dates: start: 20130627

REACTIONS (22)
  - Toxic epidermal necrolysis [Recovered/Resolved with Sequelae]
  - Visual impairment [Recovered/Resolved]
  - Malnutrition [Unknown]
  - Headache [Unknown]
  - Red blood cells urine positive [Unknown]
  - Escherichia test positive [Unknown]
  - White blood cells urine positive [Unknown]
  - Normochromic normocytic anaemia [Unknown]
  - Insomnia [Unknown]
  - Nausea [Unknown]
  - Decreased appetite [Unknown]
  - Migraine [Unknown]
  - Oropharyngeal pain [Unknown]
  - Lymphadenopathy [Unknown]
  - Mood altered [Unknown]
  - Memory impairment [Unknown]
  - Depressed mood [Unknown]
  - Eyelid oedema [Unknown]
  - Asthenia [Unknown]
  - Irritability [Unknown]
  - Psychomotor hyperactivity [Unknown]
  - Therapy cessation [Unknown]
